FAERS Safety Report 13943809 (Version 1)
Quarter: 2017Q3

REPORT INFORMATION
  Report Type: Spontaneous
  Country: US (occurrence: US)
  Receive Date: 20170907
  Receipt Date: 20170907
  Transmission Date: 20171128
  Serious: No
  Sender: FDA-Public Use
  Company Number: US-ROCHE-1474277

PATIENT
  Age: 17 Year
  Sex: Male

DRUGS (4)
  1. RITUXIMAB. [Suspect]
     Active Substance: RITUXIMAB
     Route: 065
  2. AMINOCAPROIC ACID. [Concomitant]
     Active Substance: AMINOCAPROIC ACID
  3. RITUXIMAB. [Suspect]
     Active Substance: RITUXIMAB
     Route: 065
     Dates: start: 200404
  4. RITUXIMAB. [Suspect]
     Active Substance: RITUXIMAB
     Indication: FACTOR IX DEFICIENCY
     Route: 065

REACTIONS (1)
  - Hypogammaglobulinaemia [Recovering/Resolving]
